FAERS Safety Report 8833195 (Version 1)
Quarter: 2012Q4

REPORT INFORMATION
  Report Type: 
  Country: US (occurrence: US)
  Receive Date: 20121010
  Receipt Date: 20121010
  Transmission Date: 20130627
  Serious: Yes (Other)
  Sender: FDA-Public Use
  Company Number: US-JNJFOC-20120913409

PATIENT
  Sex: Female
  Weight: 58.97 kg

DRUGS (6)
  1. REMICADE [Suspect]
     Indication: FISTULA
     Route: 042
     Dates: start: 201203
  2. REMICADE [Suspect]
     Indication: FISTULA
     Route: 042
     Dates: start: 201003, end: 201203
  3. REMICADE [Suspect]
     Indication: CROHN^S DISEASE
     Route: 042
     Dates: start: 201203
  4. REMICADE [Suspect]
     Indication: CROHN^S DISEASE
     Route: 042
     Dates: start: 201003, end: 201203
  5. ASACOL [Concomitant]
     Indication: CROHN^S DISEASE
     Route: 048
     Dates: start: 201003
  6. FLAGYL [Concomitant]
     Indication: FISTULA
     Route: 048
     Dates: start: 201003

REACTIONS (6)
  - Skin discolouration [Not Recovered/Not Resolved]
  - Fistula [Unknown]
  - Fistula [Unknown]
  - Pruritus [Not Recovered/Not Resolved]
  - Beta haemolytic streptococcal infection [Not Recovered/Not Resolved]
  - Therapeutic response decreased [Recovered/Resolved]
